FAERS Safety Report 8960320 (Version 1)
Quarter: 2012Q4

REPORT INFORMATION
  Report Type: 
  Country: BR (occurrence: BR)
  Receive Date: 20121212
  Receipt Date: 20121212
  Transmission Date: 20130627
  Serious: Yes (Hospitalization)
  Sender: FDA-Public Use
  Company Number: BR-ELI_LILLY_AND_COMPANY-BR201211009434

PATIENT
  Sex: Female
  Weight: 75 kg

DRUGS (1)
  1. HUMALOG LISPRO [Suspect]
     Indication: DIABETES MELLITUS
     Dosage: UNK, tid
     Route: 058
     Dates: start: 20121119

REACTIONS (4)
  - Diabetic complication [Unknown]
  - Eye infection [Unknown]
  - Eye disorder [Unknown]
  - Blood glucose increased [Unknown]
